FAERS Safety Report 18392401 (Version 1)
Quarter: 2020Q4

REPORT INFORMATION
  Report Type: Spontaneous
  Country: US (occurrence: US)
  Receive Date: 20201016
  Receipt Date: 20201016
  Transmission Date: 20210114
  Serious: Yes (Other)
  Sender: FDA-Public Use
  Company Number: None

PATIENT
  Age: 68 Year
  Sex: Male
  Weight: 122.9 kg

DRUGS (12)
  1. CARBOXYMETHYLCELLULOSE [Concomitant]
     Active Substance: CARBOXYMETHYLCELLULOSE
     Dates: start: 20201014
  2. POLYETHYLENE GLYCOL [Concomitant]
     Active Substance: POLYETHYLENE GLYCOLS
     Dates: start: 20201014
  3. CHLORHEXIDINE GLUCONATE. [Concomitant]
     Active Substance: CHLORHEXIDINE GLUCONATE
     Dates: start: 20201014
  4. INSULIN LISPRO [Concomitant]
     Active Substance: INSULIN LISPRO
     Dates: start: 20201013
  5. MELATONIN [Concomitant]
     Active Substance: MELATONIN
     Dates: start: 20201013
  6. NOREPINEPHRINE. [Concomitant]
     Active Substance: NOREPINEPHRINE
     Dates: start: 20201014
  7. HYDROMORPHONE [Concomitant]
     Active Substance: HYDROMORPHONE
     Dates: start: 20201014
  8. LORAZEPAM. [Concomitant]
     Active Substance: LORAZEPAM
     Dates: start: 20201014
  9. DEXAMETHASONE. [Concomitant]
     Active Substance: DEXAMETHASONE
     Dates: start: 20201012
  10. SENNOSIDES DOCUSATE SODIUM [Concomitant]
     Dates: start: 20201014
  11. REMDESIVIR. [Suspect]
     Active Substance: REMDESIVIR
     Indication: COVID-19
     Route: 042
     Dates: start: 20201013, end: 20201014
  12. ACETAMINOPHEN. [Concomitant]
     Active Substance: ACETAMINOPHEN
     Dates: start: 20201013

REACTIONS (3)
  - Therapy cessation [None]
  - Blood creatinine increased [None]
  - Acute kidney injury [None]

NARRATIVE: CASE EVENT DATE: 20201015
